FAERS Safety Report 16776026 (Version 1)
Quarter: 2019Q3

REPORT INFORMATION
  Report Type: Spontaneous
  Country: BE (occurrence: BE)
  Receive Date: 20190905
  Receipt Date: 20190905
  Transmission Date: 20191005
  Serious: Yes (Other)
  Sender: FDA-Public Use
  Company Number: PHHY2019BE204601

PATIENT
  Age: 41 Year
  Sex: Female

DRUGS (5)
  1. ENALAPRIL [Suspect]
     Active Substance: ENALAPRIL
     Indication: GLOMERULAR VASCULAR DISORDER
     Dosage: 20 MG, QD
     Route: 065
     Dates: start: 2014
  2. TACROLIMUS. [Concomitant]
     Active Substance: TACROLIMUS
     Indication: GLOMERULAR VASCULAR DISORDER
     Dosage: UNK
     Route: 065
  3. FUROSEMIDE. [Concomitant]
     Active Substance: FUROSEMIDE
     Indication: GLOMERULAR VASCULAR DISORDER
     Dosage: UNK
     Route: 065
  4. LERCANIDIPINE [Concomitant]
     Active Substance: LERCANIDIPINE
     Indication: GLOMERULAR VASCULAR DISORDER
     Dosage: UNK
     Route: 065
  5. SPIRONOLACTONE. [Concomitant]
     Active Substance: SPIRONOLACTONE
     Indication: GLOMERULAR VASCULAR DISORDER
     Dosage: UNK
     Route: 065

REACTIONS (4)
  - Intestinal angioedema [Recovered/Resolved]
  - Abdominal pain [Recovered/Resolved]
  - Lip swelling [Recovered/Resolved]
  - Product use in unapproved indication [Unknown]

NARRATIVE: CASE EVENT DATE: 201802
